FAERS Safety Report 16716545 (Version 1)
Quarter: 2019Q3

REPORT INFORMATION
  Report Type: Spontaneous
  Country: DK (occurrence: DK)
  Receive Date: 20190819
  Receipt Date: 20190819
  Transmission Date: 20191005
  Serious: Yes (Other)
  Sender: FDA-Public Use
  Company Number: DK-PFIZER INC-2019348300

PATIENT
  Age: 73 Year
  Sex: Female

DRUGS (8)
  1. FEMAR [Suspect]
     Active Substance: LETROZOLE
     Indication: BREAST CANCER FEMALE
     Dosage: 5 MG, 1X/DAY
     Route: 048
     Dates: start: 20180125
  2. RAMIPRIL HYDROCHLORTHIAZIDE 1A PHARMA GMBH [Concomitant]
     Indication: HYPERTENSION
     Dosage: 1 DF, 1X/DAY
     Route: 048
     Dates: start: 2005, end: 20181114
  3. ZOLEDRONIC ACID HOSPIRA [Suspect]
     Active Substance: ZOLEDRONIC ACID
     Indication: HYPERCALCAEMIA
     Dosage: 4 MG, EVERY 6 MONTHS (STRENGTH: 4 MG/100 ML)
     Route: 042
     Dates: start: 20180411
  4. CENTYL MED KALIUMKLORID [Suspect]
     Active Substance: BENDROFLUMETHIAZIDE\POTASSIUM CHLORIDE
     Indication: DIURETIC THERAPY
     Dosage: 1 DF, 1X/DAY (STRENGTH: 2.5 + 573 MG)
     Route: 048
     Dates: start: 20181126
  5. RAMIPRIL HEXAL [Suspect]
     Active Substance: RAMIPRIL
     Indication: HYPERTENSION
     Dosage: 5 MG, 1X/DAY
     Route: 048
     Dates: start: 20181126
  6. VALACYCLOVIR [Concomitant]
     Active Substance: VALACYCLOVIR HYDROCHLORIDE
     Indication: HERPES VIRUS INFECTION
     Dosage: 500 MG, AS NEEDED (DOSE: 1 TABLET IN THE MORNING AS NEEDED)
     Route: 048
     Dates: start: 20180501
  7. ZOVIR [Concomitant]
     Active Substance: ACYCLOVIR
     Indication: HERPES VIRUS INFECTION
     Dosage: 1 APPLICATION 5 TIMES DAILY FOR 5 DAYS, AS NEEDED
     Route: 003
     Dates: start: 20180501
  8. GLYCEROL [Concomitant]
     Active Substance: GLYCERIN
     Indication: CONSTIPATION
     Dosage: 1 DF, AS NEEDED (DOSE: 1 SUPPOSITORY)
     Route: 054
     Dates: start: 20180619

REACTIONS (9)
  - Weight increased [Unknown]
  - Disease recurrence [Unknown]
  - Sudden hearing loss [Not Recovered/Not Resolved]
  - Rash [Unknown]
  - Hyperhidrosis [Unknown]
  - Hyperhidrosis [Unknown]
  - Paraesthesia [Unknown]
  - Alopecia [Unknown]
  - Off label use [Unknown]

NARRATIVE: CASE EVENT DATE: 2018
